FAERS Safety Report 5572428-8 (Version None)
Quarter: 2007Q4

REPORT INFORMATION
  Report Type: 
  Country: None (occurrence: None)
  Receive Date: 20071222
  Receipt Date: 20071209
  Transmission Date: 20080405
  Serious: Yes (Other)
  Sender: FDA-Public Use
  Company Number: US-PFIZER INC-2007093634

PATIENT
  Sex: Female
  Weight: 48.5 kg

DRUGS (4)
  1. CHANTIX [Suspect]
     Indication: SMOKING CESSATION THERAPY
  2. ANTIDEPRESSANTS [Concomitant]
  3. DIURETICS [Concomitant]
  4. ACTONEL [Concomitant]

REACTIONS (8)
  - ANXIETY [None]
  - DYSGEUSIA [None]
  - GINGIVAL OPERATION [None]
  - HYPERPHAGIA [None]
  - NAUSEA [None]
  - RASH [None]
  - SKIN DISORDER [None]
  - WEIGHT DECREASED [None]
